FAERS Safety Report 13646228 (Version 1)
Quarter: 2017Q2

REPORT INFORMATION
  Report Type: Spontaneous
  Country: FR (occurrence: FR)
  Receive Date: 20170613
  Receipt Date: 20170613
  Transmission Date: 20170830
  Serious: Yes (Other)
  Sender: FDA-Public Use
  Company Number: FR-BAYER-2017-111154

PATIENT
  Sex: Female

DRUGS (1)
  1. MIRENA [Suspect]
     Active Substance: LEVONORGESTREL
     Dosage: 20 MCG/24HR, CONT
     Route: 015
     Dates: start: 20101209, end: 20170525

REACTIONS (12)
  - Back pain [Unknown]
  - Hypertrichosis [Unknown]
  - Loss of libido [Unknown]
  - Vulvovaginal dryness [Recovering/Resolving]
  - Depression [Unknown]
  - Fatigue [Unknown]
  - Anxiety [Unknown]
  - Abdominal pain upper [Unknown]
  - Infection [Unknown]
  - Memory impairment [Unknown]
  - Erythema [Unknown]
  - Suicidal ideation [Unknown]
